FAERS Safety Report 9170319 (Version 1)
Quarter: 2013Q1

REPORT INFORMATION
  Report Type: Spontaneous
  Country: US (occurrence: None)
  Receive Date: 20130315
  Receipt Date: 20130315
  Transmission Date: 20140127
  Serious: Yes (Death)
  Sender: FDA-Public Use
  Company Number: None

PATIENT
  Age: 72 Year
  Sex: Female
  Weight: 93 kg

DRUGS (1)
  1. PROHANCE BRACCO [Suspect]
     Route: 040
     Dates: start: 20130313, end: 20130313

REACTIONS (2)
  - Circulatory collapse [None]
  - Cardiac arrest [None]
